FAERS Safety Report 23150017 (Version 1)
Quarter: 2023Q4

REPORT INFORMATION
  Report Type: Spontaneous
  Country: US (occurrence: US)
  Receive Date: 20231106
  Receipt Date: 20231106
  Transmission Date: 20240110
  Serious: No
  Sender: FDA-Public Use
  Company Number: US-PFIZER INC-202300353309

PATIENT
  Age: 85 Year
  Sex: Female

DRUGS (3)
  1. IBRANCE [Suspect]
     Active Substance: PALBOCICLIB
     Dosage: 75 MG, AT NIGHT
     Dates: start: 202309
  2. ANASTROZOLE [Concomitant]
     Active Substance: ANASTROZOLE
     Dosage: IN THE MORNING
  3. TRAMADOL [Concomitant]
     Active Substance: TRAMADOL\TRAMADOL HYDROCHLORIDE
     Indication: Sleep disorder
     Dosage: AT NIGHT

REACTIONS (3)
  - Dizziness [Unknown]
  - Decreased appetite [Unknown]
  - Malaise [Unknown]
